FAERS Safety Report 4318963-1 (Version None)
Quarter: 2004Q1

REPORT INFORMATION
  Report Type: 
  Country: None (occurrence: None)
  Receive Date: 20040315
  Receipt Date: 20040304
  Transmission Date: 20041129
  Serious: Yes (Hospitalization, Disabling, Other)
  Sender: FDA-Public Use
  Company Number: 6007752

PATIENT
  Age: 66 Year
  Sex: Female

DRUGS (10)
  1. LEVOTHYROXINE SODIUM [Suspect]
     Indication: HYPOTHYROIDISM
     Dosage: ORAL
     Route: 048
  2. PREVISCAN (TABLETS) (FLUINDIONE) [Suspect]
     Dosage: ORAL
     Route: 048
  3. ALDACTONE (TABLETS) (SPIRONOLACTONE) [Suspect]
     Dosage: ORAL
     Route: 048
  4. LASIX [Suspect]
     Dosage: ORAL
     Route: 048
  5. KREDEX (TABLETS) (CARVEDILOL) [Suspect]
     Dosage: ORAL
     Route: 048
  6. TAHOR (TABLETS) (ATORVASTATIN CALCIUM) [Suspect]
     Dosage: ORAL
     Route: 048
  7. HEMIGOXINE (TABLETS)  (DIGOXIN) [Suspect]
     Dosage: ORAL
     Route: 048
  8. GLUCOR (TABLETS) (ACARBOSE) [Suspect]
     Dosage: ORAL
     Route: 048
  9. DIAFUSOR (GLYCERYL TRINITRATE) [Suspect]
  10. BEROCCA (TABLETS) (ASCORBIC ACID, BIOTIN, CALCIUM CARBONATE, MAGNESIUM [Suspect]
     Dosage: ORAL
     Route: 048

REACTIONS (8)
  - DRUG INTERACTION [None]
  - HYPOAESTHESIA [None]
  - HYPOKINESIA [None]
  - HYPOREFLEXIA [None]
  - MOTOR DYSFUNCTION [None]
  - SENSORY LOSS [None]
  - SPINAL CORD COMPRESSION [None]
  - SUBDURAL HAEMATOMA [None]
